FAERS Safety Report 14186442 (Version 1)
Quarter: 2017Q4

REPORT INFORMATION
  Report Type: Spontaneous
  Country: US (occurrence: US)
  Receive Date: 20171114
  Receipt Date: 20171114
  Transmission Date: 20180321
  Serious: No
  Sender: FDA-Public Use
  Company Number: US-ASTRAZENECA-2017SF14473

PATIENT
  Age: 90 Year
  Sex: Female

DRUGS (3)
  1. TUDORZA PRESSAIR [Suspect]
     Active Substance: ACLIDINIUM BROMIDE
     Dosage: 400.0UG UNKNOWN
     Route: 055
  2. QVAR [Concomitant]
     Active Substance: BECLOMETHASONE DIPROPIONATE
     Route: 055
  3. BEVESPI AEROSPHERE [Suspect]
     Active Substance: FORMOTEROL FUMARATE\GLYCOPYRROLATE
     Indication: CHRONIC OBSTRUCTIVE PULMONARY DISEASE
     Dosage: 9 MCG/4.8 MCG, TWO PUFFS, TWO TIMES A DAY
     Route: 055
     Dates: start: 2017, end: 201711

REACTIONS (7)
  - Decreased appetite [Unknown]
  - Tremor [Unknown]
  - Oropharyngeal pain [Unknown]
  - Aphonia [Recovering/Resolving]
  - Dyspepsia [Unknown]
  - Dehydration [Unknown]
  - Weight decreased [Unknown]
